FAERS Safety Report 15837631 (Version 1)
Quarter: 2019Q1

REPORT INFORMATION
  Report Type: Spontaneous
  Country: US (occurrence: US)
  Receive Date: 20190117
  Receipt Date: 20190117
  Transmission Date: 20190417
  Serious: No
  Sender: FDA-Public Use
  Company Number: None

PATIENT
  Sex: Female

DRUGS (2)
  1. ROSUVASTATIN 5 MG [Suspect]
     Active Substance: ROSUVASTATIN
  2. ATORVASTATIN 20 MG [Suspect]
     Active Substance: ATORVASTATIN

REACTIONS (2)
  - Myalgia [None]
  - Pain in extremity [None]
